FAERS Safety Report 21338291 (Version 3)
Quarter: 2022Q4

REPORT INFORMATION
  Report Type: Spontaneous
  Country: MX (occurrence: MX)
  Receive Date: 20220915
  Receipt Date: 20221027
  Transmission Date: 20230113
  Serious: No
  Sender: FDA-Public Use
  Company Number: MX-PFIZER INC-PV202200048834

PATIENT
  Age: 12 Year
  Sex: Female

DRUGS (1)
  1. GENOTROPIN [Suspect]
     Active Substance: SOMATROPIN
     Dosage: (16UI)
     Route: 058
     Dates: start: 20190307

REACTIONS (2)
  - Device information output issue [Unknown]
  - Drug dose omission by device [Unknown]
